FAERS Safety Report 5145819-7 (Version None)
Quarter: 2006Q4

REPORT INFORMATION
  Report Type: 
  Country: None (occurrence: None)
  Receive Date: 20061108
  Receipt Date: 20061030
  Transmission Date: 20070319
  Serious: Yes (Hospitalization)
  Sender: FDA-Public Use
  Company Number: US-JNJFOC-20040100125

PATIENT
  Sex: Female
  Weight: 53.52 kg

DRUGS (5)
  1. REMICADE [Suspect]
  2. REMICADE [Suspect]
  3. REMICADE [Suspect]
     Indication: CROHN'S DISEASE
  4. 6-MP [Concomitant]
     Indication: CROHN'S DISEASE
  5. PENTASA [Concomitant]

REACTIONS (9)
  - ALOPECIA [None]
  - CROHN'S DISEASE [None]
  - EAR INFECTION [None]
  - ECZEMA [None]
  - MUSCLE SPASMS [None]
  - MUSCULAR WEAKNESS [None]
  - MYALGIA [None]
  - OSTEOMYELITIS BACTERIAL [None]
  - WEIGHT INCREASED [None]
